FAERS Safety Report 5600974-7 (Version None)
Quarter: 2008Q1

REPORT INFORMATION
  Report Type: 
  Country: None (occurrence: None)
  Receive Date: 20080118
  Receipt Date: 20080104
  Transmission Date: 20080703
  Serious: Yes (Death)
  Sender: FDA-Public Use
  Company Number: 2008001159

PATIENT
  Age: 34 Year
  Sex: Male

DRUGS (5)
  1. ETHANOL (ETHANOL) [Suspect]
     Indication: SUICIDE ATTEMPT
     Dosage: UNSPECIFIED, ORAL
     Route: 048
  2. AMPHETAMINE SULFATE [Suspect]
     Indication: SUICIDE ATTEMPT
     Dosage: UNSPECIFIED, ORAL
     Route: 048
  3. BUPROPION HCL [Suspect]
     Indication: SUICIDE ATTEMPT
     Dosage: UNSPECIFIED, ORAL
     Route: 048
  4. ACETAMINOPHEN W/ PROPOXYPHENE HCL [Suspect]
     Indication: SUICIDE ATTEMPT
     Dosage: UNSPECIFIED, ORAL
     Route: 048
  5. BENZODIAZEPINE DERIVATIVES (BENZODIAZEPINE DERIVATIVES) [Suspect]
     Indication: SUICIDE ATTEMPT
     Dosage: UNSPECIFIED, ORAL
     Route: 048

REACTIONS (3)
  - BLOOD PRESSURE INCREASED [None]
  - CARDIAC ARREST [None]
  - COMPLETED SUICIDE [None]
